FAERS Safety Report 23886364 (Version 4)
Quarter: 2024Q2

REPORT INFORMATION
  Report Type: Report from Study
  Country: CA (occurrence: CA)
  Receive Date: 20240522
  Receipt Date: 20240607
  Transmission Date: 20240716
  Serious: Yes (Hospitalization, Other)
  Sender: FDA-Public Use
  Company Number: CA-HLS-202401280

PATIENT
  Age: 37 Year
  Sex: Male

DRUGS (1)
  1. CLOZARIL [Suspect]
     Active Substance: CLOZAPINE
     Indication: Product used for unknown indication
     Route: 048
     Dates: start: 20070516

REACTIONS (8)
  - Schizophrenia [Unknown]
  - Neutropenia [Recovered/Resolved]
  - Lymphadenitis [Unknown]
  - Pneumonia [Unknown]
  - Product dose omission issue [Unknown]
  - Immune thrombocytopenia [Not Recovered/Not Resolved]
  - Psychiatric decompensation [Unknown]
  - Leukopenia [Recovered/Resolved]

NARRATIVE: CASE EVENT DATE: 20170101
